FAERS Safety Report 16614240 (Version 1)
Quarter: 2019Q3

REPORT INFORMATION
  Report Type: Spontaneous
  Country: FR (occurrence: FR)
  Receive Date: 20190723
  Receipt Date: 20190723
  Transmission Date: 20191004
  Serious: Yes (Hospitalization)
  Sender: FDA-Public Use
  Company Number: FR-ZYDUS-038659

PATIENT
  Age: 85 Year
  Sex: Male

DRUGS (14)
  1. RISPERIDONE. [Concomitant]
     Active Substance: RISPERIDONE
  2. MIANSERIN [Concomitant]
     Active Substance: MIANSERIN
  3. SIMVASTATIN. [Suspect]
     Active Substance: SIMVASTATIN
     Indication: PRESCRIPTION DRUG USED WITHOUT A PRESCRIPTION
     Dosage: 10 MG - SINGLE DOSE
     Route: 048
     Dates: start: 20190620, end: 20190620
  4. SERESTA [Suspect]
     Active Substance: OXAZEPAM
     Indication: PRESCRIPTION DRUG USED WITHOUT A PRESCRIPTION
     Dosage: 50 MG - SINGLE DOSE
     Route: 048
     Dates: start: 20190620, end: 20190620
  5. MOVICOL [Concomitant]
     Active Substance: POLYETHYLENE GLYCOL 3350\POTASSIUM CHLORIDE\SODIUM BICARBONATE\SODIUM CHLORIDE
  6. VALPROIC ACID. [Suspect]
     Active Substance: VALPROIC ACID
     Indication: PRESCRIPTION DRUG USED WITHOUT A PRESCRIPTION
     Dosage: 750 MG - SINGLE DOSE
     Route: 048
     Dates: start: 20190620, end: 20190620
  7. TRAMADOL. [Concomitant]
     Active Substance: TRAMADOL
  8. LANSOPRAZOLE. [Concomitant]
     Active Substance: LANSOPRAZOLE
  9. LOXAPAC [Suspect]
     Active Substance: LOXAPINE
     Indication: PRESCRIPTION DRUG USED WITHOUT A PRESCRIPTION
     Dosage: 30 DROPS -SINGLE DOSE
     Route: 048
     Dates: start: 20190620, end: 20190620
  10. TAMSULOSIN [Concomitant]
     Active Substance: TAMSULOSIN
  11. OLANZAPINE. [Suspect]
     Active Substance: OLANZAPINE
     Indication: PRESCRIPTION DRUG USED WITHOUT A PRESCRIPTION
     Dosage: 20 DROPS - SINGLE SHOT
     Route: 048
     Dates: start: 20190620, end: 20190620
  12. PARACETAMOL [Concomitant]
     Active Substance: ACETAMINOPHEN
  13. KARDEGIC [Concomitant]
     Active Substance: ASPIRIN DL-LYSINE
  14. AMIODARONE [Concomitant]
     Active Substance: AMIODARONE

REACTIONS (2)
  - Somnolence [Recovered/Resolved]
  - Wrong patient received product [Recovered/Resolved]

NARRATIVE: CASE EVENT DATE: 20190620
